FAERS Safety Report 4597409-2 (Version None)
Quarter: 2005Q1

REPORT INFORMATION
  Report Type: 
  Country: None (occurrence: None)
  Receive Date: 20050228
  Receipt Date: 20050228
  Transmission Date: 20050727
  Serious: No
  Sender: FDA-Public Use
  Company Number: None

PATIENT
  Sex: Female
  Weight: 68.0396 kg

DRUGS (1)
  1. NAPROSYN [Suspect]
     Indication: OSTEOARTHRITIS
     Dosage: 1/2 TAB TWICE DAY PO
     Route: 048

REACTIONS (1)
  - HYPERSENSITIVITY [None]
